FAERS Safety Report 21977427 (Version 2)
Quarter: 2023Q1

REPORT INFORMATION
  Report Type: Spontaneous
  Country: TW (occurrence: TW)
  Receive Date: 20230210
  Receipt Date: 20230221
  Transmission Date: 20230418
  Serious: Yes (Death, Other)
  Sender: FDA-Public Use
  Company Number: TW-CHUGAI-2023003723

PATIENT
  Age: 77 Year
  Sex: Female
  Weight: 73.2 kg

DRUGS (10)
  1. ACTEMRA [Suspect]
     Active Substance: TOCILIZUMAB
     Indication: Rheumatoid arthritis
     Dosage: 400 MILLIGRAM, ONCE/MONTH
     Route: 041
     Dates: start: 20220429, end: 20221209
  2. METHOTREXATE [Suspect]
     Active Substance: METHOTREXATE
     Indication: Rheumatoid arthritis
     Dosage: 10 MILLIGRAM, ONCE/WEEK
     Route: 048
     Dates: start: 20191025, end: 20230105
  3. PREDNISOLONE [Concomitant]
     Active Substance: PREDNISOLONE
     Indication: Rheumatoid arthritis
     Dosage: 5 MILLIGRAM, QD
     Route: 048
     Dates: start: 20140505, end: 20230105
  4. PLAQUENIL [Concomitant]
     Active Substance: HYDROXYCHLOROQUINE SULFATE
     Indication: Rheumatoid arthritis
     Dosage: 200 MILLIGRAM, QD
     Route: 048
     Dates: start: 20220819, end: 20230105
  5. CELEBREX [Concomitant]
     Active Substance: CELECOXIB
     Indication: Rheumatoid arthritis
     Dosage: 200 MILLIGRAM, QD
     Route: 048
     Dates: start: 20220527, end: 20230105
  6. UROGEN (TAIWAN) [Concomitant]
     Indication: Stress urinary incontinence
     Dosage: 50 MILLIGRAM, QDPM
     Route: 048
     Dates: start: 20221121, end: 20230105
  7. XANAX XR [Concomitant]
     Active Substance: ALPRAZOLAM
     Indication: Sleep disorder
     Dosage: 0.5 MILLIGRAM, TID
     Route: 048
     Dates: start: 20201225, end: 20230105
  8. ASPIRIN [Concomitant]
     Active Substance: ASPIRIN
     Indication: Prophylaxis
     Dosage: 100 MILLIGRAM, QD
     Route: 048
     Dates: start: 20180601, end: 20230105
  9. CRESTOR [Concomitant]
     Active Substance: ROSUVASTATIN CALCIUM
     Indication: Hyperlipidaemia
     Dosage: 10 MILLIGRAM, QD
     Route: 048
     Dates: start: 20190802, end: 20230105
  10. METFORMIN HYDROCHLORIDE\VILDAGLIPTIN [Concomitant]
     Active Substance: METFORMIN HYDROCHLORIDE\VILDAGLIPTIN
     Indication: Diabetes mellitus
     Dosage: 1.5TAB, QD
     Route: 048
     Dates: start: 20220819, end: 20230105

REACTIONS (9)
  - Gastrointestinal haemorrhage [Fatal]
  - Shock haemorrhagic [Fatal]
  - Bronchopulmonary aspergillosis [Fatal]
  - Pancytopenia [Unknown]
  - Urine output decreased [Unknown]
  - Blood creatinine increased [Unknown]
  - Weight increased [Unknown]
  - Lactic acidosis [Unknown]
  - Candida infection [Unknown]

NARRATIVE: CASE EVENT DATE: 20221220
